FAERS Safety Report 22349046 (Version 3)
Quarter: 2024Q3

REPORT INFORMATION
  Report Type: Spontaneous
  Country: BR (occurrence: BR)
  Receive Date: 20230522
  Receipt Date: 20240822
  Transmission Date: 20241017
  Serious: Yes (Hospitalization, Other)
  Sender: GLAXOSMITHKLINE
  Company Number: BR-GLAXOSMITHKLINE-BR2021AMR158772

PATIENT

DRUGS (1)
  1. NUCALA [Suspect]
     Active Substance: MEPOLIZUMAB
     Indication: Asthma
     Dosage: 100 MG/ML, Q4W
     Dates: start: 20210429

REACTIONS (21)
  - Pneumonia [Recovered/Resolved]
  - Spinal pain [Unknown]
  - Cough [Recovered/Resolved]
  - Chikungunya virus infection [Not Recovered/Not Resolved]
  - Arthralgia [Recovered/Resolved]
  - Pruritus [Recovered/Resolved]
  - Gait disturbance [Recovered/Resolved]
  - Pyrexia [Recovered/Resolved]
  - Joint swelling [Recovered/Resolved]
  - Vomiting [Recovered/Resolved]
  - Fatigue [Unknown]
  - Pain [Unknown]
  - Feeling hot [Unknown]
  - Wheezing [Unknown]
  - Productive cough [Unknown]
  - Malaise [Not Recovered/Not Resolved]
  - Fear [Unknown]
  - Bronchitis [Unknown]
  - Lung disorder [Unknown]
  - Inappropriate schedule of product administration [Unknown]
  - Product dose omission issue [Unknown]

NARRATIVE: CASE EVENT DATE: 20210701
